FAERS Safety Report 5720351-8 (Version None)
Quarter: 2008Q2

REPORT INFORMATION
  Report Type: 
  Country: None (occurrence: None)
  Receive Date: 20080428
  Receipt Date: 20080416
  Transmission Date: 20081010
  Serious: Yes (Other)
  Sender: FDA-Public Use
  Company Number: US-PFIZER INC-2008033759

PATIENT
  Sex: Female
  Weight: 45.4 kg

DRUGS (3)
  1. DILANTIN [Suspect]
     Indication: GRAND MAL CONVULSION
  2. LEVOTHYROXINE SODIUM [Concomitant]
  3. OTHER RESPIRATORY SYSTEM PRODUCTS [Concomitant]

REACTIONS (3)
  - ABASIA [None]
  - DIZZINESS [None]
  - SEDATION [None]
